FAERS Safety Report 5036749-X (Version None)
Quarter: 2006Q2

REPORT INFORMATION
  Report Type: 
  Country: None (occurrence: None)
  Receive Date: 20060601
  Receipt Date: 20060202
  Transmission Date: 20061013
  Serious: No
  Sender: FDA-Public Use
  Company Number: USA050290750

PATIENT
  Age: 58 Year
  Sex: Female

DRUGS (8)
  1. CYMBALTA [Suspect]
     Indication: DEPRESSION
     Dosage: 60 MG, DAILY (1/D)
     Dates: start: 20050211
  2. PROZAC [Suspect]
  3. GLUCOPHAGE [Concomitant]
  4. BENICAR [Concomitant]
  5. LOZOL [Concomitant]
  6. FIORINAL [Concomitant]
  7. LEXAPRO [Concomitant]
  8. AMARYL /SWE/ (GLIMEPIRIDE) [Concomitant]

REACTIONS (2)
  - EUPHORIC MOOD [None]
  - HYPERHIDROSIS [None]
